FAERS Safety Report 15273183 (Version 1)
Quarter: 2018Q4

REPORT INFORMATION
  Report Type: Spontaneous
  Country: AU (occurrence: AU)
  Receive Date: 20180813
  Receipt Date: 20180813
  Transmission Date: 20190204
  Serious: Yes (Other)
  Sender: FDA-Public Use
  Company Number: AU-ALSI-201800487

PATIENT
  Sex: Female
  Weight: 4.7 kg

DRUGS (1)
  1. OXYGEN. [Suspect]
     Active Substance: OXYGEN
     Route: 055

REACTIONS (1)
  - Respiratory depression [Recovered/Resolved]
